FAERS Safety Report 5746201-1 (Version None)
Quarter: 2008Q2

REPORT INFORMATION
  Report Type: 
  Country: None (occurrence: None)
  Receive Date: 20080522
  Receipt Date: 20080522
  Transmission Date: 20081010
  Serious: Yes (Death)
  Sender: FDA-Public Use
  Company Number: None

PATIENT
  Sex: Male

DRUGS (2)
  1. HEPARIN [Suspect]
     Indication: ANTICOAGULANT THERAPY
     Dosage: 15000 UNITS IV
     Route: 042
     Dates: start: 20080123, end: 20080123
  2. HEPARIN [Suspect]
     Indication: SURGERY
     Dosage: 15000 UNITS IV
     Route: 042
     Dates: start: 20080123, end: 20080123

REACTIONS (4)
  - POST PROCEDURAL COMPLICATION [None]
  - SEPSIS [None]
  - SERRATIA INFECTION [None]
  - THERAPEUTIC PRODUCT CONTAMINATION [None]
